FAERS Safety Report 10098038 (Version 1)
Quarter: 2014Q2

REPORT INFORMATION
  Report Type: Report from Study
  Country: US (occurrence: US)
  Receive Date: 20140423
  Receipt Date: 20140423
  Transmission Date: 20141212
  Serious: Yes (Other)
  Sender: FDA-Public Use
  Company Number: US-ROCHE-1383960

PATIENT
  Sex: Female
  Weight: 106.69 kg

DRUGS (3)
  1. RITUXAN [Suspect]
     Indication: RHEUMATOID ARTHRITIS
     Dosage: EVERY 6 MONTHS,   ABOUT 2 YEARS AGO
     Route: 042
  2. METFORMIN [Concomitant]
     Indication: DIABETES MELLITUS
     Route: 048
  3. GLIPIZIDE [Concomitant]
     Indication: DIABETES MELLITUS
     Route: 048

REACTIONS (3)
  - Sjogren^s syndrome [Not Recovered/Not Resolved]
  - Dry mouth [Unknown]
  - Oral candidiasis [Not Recovered/Not Resolved]
